FAERS Safety Report 6450460-X (Version None)
Quarter: 2009Q4

REPORT INFORMATION
  Report Type: 
  Country: None (occurrence: None)
  Receive Date: 20091123
  Receipt Date: 20091027
  Transmission Date: 20100525
  Serious: Yes (Hospitalization)
  Sender: FDA-Public Use
  Company Number: GB-BAYER-200937302GPV

PATIENT
  Weight: 1.86 kg

DRUGS (5)
  1. NIFEDIPINE [Suspect]
     Indication: HYPERTENSION
     Dosage: UNIT DOSE: 30 MG
  2. PREDNISOLONE [Suspect]
     Indication: IMMUNOSUPPRESSION
     Dosage: UNIT DOSE: 20 MG
  3. AZATHIOPRINE [Suspect]
     Indication: IMMUNOSUPPRESSION
     Dosage: UNIT DOSE: 50 MG
  4. CYCLOSPORINE [Suspect]
     Indication: RENAL TRANSPLANT
     Dosage: UNIT DOSE: 100 MG
  5. CORTICOSTEROID [Suspect]
     Indication: MATERNAL THERAPY TO ENHANCE FOETAL LUNG MATURITY

REACTIONS (2)
  - RESPIRATORY DISTRESS [None]
  - TACHYPNOEA [None]
